FAERS Safety Report 9287935 (Version 1)
Quarter: 2013Q2

REPORT INFORMATION
  Report Type: Spontaneous
  Country: US (occurrence: US)
  Receive Date: 20130514
  Receipt Date: 20130514
  Transmission Date: 20140414
  Serious: Yes (Hospitalization)
  Sender: FDA-Public Use
  Company Number: US-BAYER-2013-057708

PATIENT
  Age: 34 Year
  Sex: Female

DRUGS (4)
  1. YAZ [Suspect]
  2. YAZ [Suspect]
  3. MELOXICAM [Concomitant]
     Dosage: 15 MG, UNK
  4. FIORICET [Concomitant]

REACTIONS (2)
  - Pulmonary embolism [None]
  - Deep vein thrombosis [Recovered/Resolved]
